FAERS Safety Report 6282772-7 (Version None)
Quarter: 2009Q3

REPORT INFORMATION
  Report Type: 
  Country: None (occurrence: None)
  Receive Date: 20090724
  Receipt Date: 20090714
  Transmission Date: 20100115
  Serious: Yes (Other)
  Sender: FDA-Public Use
  Company Number: US-PFIZER INC-2009244341

PATIENT
  Sex: Female
  Weight: 54.422 kg

DRUGS (2)
  1. ZOLOFT [Suspect]
     Indication: DEPRESSION
     Dosage: 200 MG, 1X/DAY
     Route: 048
     Dates: start: 20000101
  2. TAMOXIFEN CITRATE [Concomitant]
     Indication: BREAST CANCER
     Dosage: UNK
     Dates: start: 20060101

REACTIONS (3)
  - BRONCHITIS [None]
  - PAIN [None]
  - ROAD TRAFFIC ACCIDENT [None]
